FAERS Safety Report 12954637 (Version 1)
Quarter: 2016Q4

REPORT INFORMATION
  Report Type: Spontaneous
  Country: US (occurrence: US)
  Receive Date: 20161117
  Receipt Date: 20161117
  Transmission Date: 20170207
  Serious: No
  Sender: FDA-Public Use
  Company Number: None

PATIENT
  Age: 69 Year
  Sex: Female
  Weight: 58.05 kg

DRUGS (4)
  1. TOPROL XL [Suspect]
     Active Substance: METOPROLOL SUCCINATE
     Indication: MITRAL VALVE INCOMPETENCE
     Dosage: ?          QUANTITY:45 TABLET(S);?
     Route: 048
     Dates: start: 20161107
  2. ELIQUIS [Concomitant]
     Active Substance: APIXABAN
  3. D [Concomitant]
  4. MULTI VITAMIN [Concomitant]
     Active Substance: VITAMINS

REACTIONS (4)
  - Tinnitus [None]
  - Fatigue [None]
  - Product substitution issue [None]
  - Dizziness [None]

NARRATIVE: CASE EVENT DATE: 20161107
